FAERS Safety Report 4699859-2 (Version None)
Quarter: 2005Q2

REPORT INFORMATION
  Report Type: 
  Country: None (occurrence: None)
  Receive Date: 20050623
  Receipt Date: 20050608
  Transmission Date: 20051028
  Serious: Yes (Hospitalization)
  Sender: FDA-Public Use
  Company Number: 280002M05JPN

PATIENT
  Sex: Female

DRUGS (2)
  1. METRODIN [Suspect]
     Indication: OVULATION INDUCTION
     Dosage: 1 IN 1 DAYS
     Dates: start: 20050602, end: 20050602
  2. METRODIN [Suspect]
     Indication: OVULATION INDUCTION
     Dosage: 1 IN 1 DAYS
     Dates: start: 20050607, end: 20050607

REACTIONS (5)
  - HEPATIC FUNCTION ABNORMAL [None]
  - LEUKOPENIA [None]
  - NO REACTION ON PREVIOUS EXPOSURE TO DRUG [None]
  - PYREXIA [None]
  - THROMBOCYTOPENIA [None]
